FAERS Safety Report 9238417 (Version 6)
Quarter: 2014Q4

REPORT INFORMATION
  Report Type: Report from Study
  Country: JP (occurrence: JP)
  Receive Date: 20130418
  Receipt Date: 20141215
  Transmission Date: 20150529
  Serious: Yes (Hospitalization, Other)
  Sender: FDA-Public Use
  Company Number: JP-PFIZER INC-2013116776

PATIENT
  Age: 68 Year
  Sex: Female
  Weight: 36 kg

DRUGS (21)
  1. LENDORMIN [Concomitant]
     Active Substance: BROTIZOLAM
     Dosage: 0.25 MG, 1X/DAY
     Route: 048
     Dates: end: 20120614
  2. HYPEN [Concomitant]
     Active Substance: ETODOLAC
     Dosage: 200 MG, 2X/DAY
     Route: 048
  3. CLEANAL [Concomitant]
     Active Substance: FUDOSTEINE
     Dosage: 400 MG, 3X/DAY
     Route: 048
     Dates: start: 20120608, end: 20120618
  4. LOPEMIN [Concomitant]
     Active Substance: LOPERAMIDE HYDROCHLORIDE
     Dosage: 1 MG, AS NEEDED
     Route: 048
     Dates: start: 20120609, end: 20120614
  5. CALBLOCK [Concomitant]
     Active Substance: AZELNIDIPINE
     Dosage: 16 MG, 1X/DAY
     Route: 048
     Dates: end: 20120614
  6. LIPITOR [Concomitant]
     Active Substance: ATORVASTATIN CALCIUM
     Dosage: 10 MG, 1X/DAY
     Route: 048
     Dates: end: 20120614
  7. MUCOSOLVAN [Concomitant]
     Active Substance: AMBROXOL\CLENBUTEROL
     Dosage: 15 MG, 3X/DAY
     Route: 048
     Dates: start: 20120608, end: 20120611
  8. DECADRON [Concomitant]
     Active Substance: DEXAMETHASONE
     Dosage: 2 MG, 1X/DAY
     Route: 048
     Dates: start: 20120609, end: 20120613
  9. XALKORI [Suspect]
     Active Substance: CRIZOTINIB
     Dosage: 250 MG, 1X/DAY
     Dates: start: 20120614, end: 20120627
  10. XALKORI [Suspect]
     Active Substance: CRIZOTINIB
     Indication: LUNG ADENOCARCINOMA
     Dosage: 250 MG, 2X/DAY
     Route: 048
     Dates: start: 20120602, end: 20120609
  11. XALKORI [Suspect]
     Active Substance: CRIZOTINIB
     Dosage: 200 MG, 2X/DAY
     Dates: start: 20120628, end: 20120801
  12. TAKEPRON [Concomitant]
     Active Substance: LANSOPRAZOLE
     Dosage: 15 MG, 1X/DAY
     Route: 048
     Dates: start: 20120612
  13. ARTIST [Concomitant]
     Active Substance: CARVEDILOL
     Dosage: 10 MG, 1X/DAY
     Route: 048
     Dates: end: 20120614
  14. MAGMITT [Concomitant]
     Active Substance: MAGNESIUM OXIDE
     Dosage: 330 MG, 3X/DAY
     Route: 048
  15. CAFFEINE. [Concomitant]
     Active Substance: CAFFEINE
     Dosage: 0.15 G, 2X/DAY
     Route: 048
  16. ROZEREM [Concomitant]
     Active Substance: RAMELTEON
     Dosage: 8 MG, 1X/DAY
     Route: 048
  17. NU LOTAN [Concomitant]
     Active Substance: LOSARTAN
     Dosage: 50 MG, 1X/DAY
     Route: 048
     Dates: end: 20120726
  18. RISPERDAL [Concomitant]
     Active Substance: RISPERIDONE
     Dosage: 0.5 MG, AS NEEDED
     Route: 048
  19. LAXOBERON [Concomitant]
     Active Substance: SODIUM PICOSULFATE
     Dosage: 10 ML, AS NEEDED
     Route: 048
     Dates: start: 20120617
  20. OMEPRAL [Concomitant]
     Active Substance: OMEPRAZOLE
     Dosage: 20 MG, 1X/DAY
     Route: 048
     Dates: end: 20120614
  21. PURSENNID [Concomitant]
     Active Substance: SENNOSIDES A AND B
     Dosage: 12 MG, AS NEEDED
     Route: 048
     Dates: end: 20120703

REACTIONS (8)
  - Performance status decreased [Recovering/Resolving]
  - Dyspnoea [Recovering/Resolving]
  - Dysphagia [Recovering/Resolving]
  - Dyspnoea [Recovering/Resolving]
  - Decreased appetite [Recovering/Resolving]
  - Malaise [Recovering/Resolving]
  - Pleural effusion [Recovering/Resolving]
  - Chylothorax [Recovering/Resolving]

NARRATIVE: CASE EVENT DATE: 20120604
